FAERS Safety Report 16457202 (Version 1)
Quarter: 2019Q3

REPORT INFORMATION
  Report Type: Spontaneous
  Country: US (occurrence: US)
  Receive Date: 20190619
  Receipt Date: 20190619
  Transmission Date: 20191004
  Serious: Yes (Other)
  Sender: FDA-Public Use
  Company Number: None

PATIENT
  Age: 56 Year
  Sex: Female
  Weight: 96.75 kg

DRUGS (1)
  1. CLOPIDOGREL [Suspect]
     Active Substance: CLOPIDOGREL BISULFATE
     Indication: ANTIPLATELET THERAPY
     Dosage: ?          QUANTITY:1 TABLET(S);?
     Route: 048
     Dates: start: 20190527, end: 20190612

REACTIONS (7)
  - Pruritus [None]
  - Chest discomfort [None]
  - Swelling face [None]
  - Dyspnoea [None]
  - Vomiting [None]
  - Urticaria [None]
  - Mouth swelling [None]

NARRATIVE: CASE EVENT DATE: 20190612
